FAERS Safety Report 4760287-2 (Version None)
Quarter: 2005Q3

REPORT INFORMATION
  Report Type: 
  Country: None (occurrence: None)
  Receive Date: 20050831
  Receipt Date: 20050816
  Transmission Date: 20060218
  Serious: Yes (Disabling)
  Sender: FDA-Public Use
  Company Number: 032-30

PATIENT
  Age: 54 Year
  Sex: Male

DRUGS (8)
  1. TEVETEN [Suspect]
     Indication: HYPERTENSION
     Dosage: 600 MG  PO
     Route: 048
     Dates: start: 20041015, end: 20050317
  2. ALDOMET [Concomitant]
  3. PERINDOPRIL AND INDAPAMIDE [Concomitant]
  4. ATENOLOL [Concomitant]
  5. METFORMIN HCL [Concomitant]
  6. GLIPIZIDE [Concomitant]
  7. NORVASC [Concomitant]
  8. LIPITOR [Concomitant]

REACTIONS (2)
  - CEREBROVASCULAR ACCIDENT [None]
  - LOSS OF CONSCIOUSNESS [None]
